FAERS Safety Report 5119396-0 (Version None)
Quarter: 2006Q3

REPORT INFORMATION
  Report Type: 
  Country: None (occurrence: None)
  Receive Date: 20060928
  Receipt Date: 20060917
  Transmission Date: 20061208
  Serious: Yes (Hospitalization)
  Sender: FDA-Public Use
  Company Number: 2006PV021328

PATIENT
  Age: 69 Year
  Sex: Female

DRUGS (1)
  1. BYETTA [Suspect]
     Dosage: SC
     Route: 058

REACTIONS (2)
  - KNEE ARTHROPLASTY [None]
  - PRURITUS [None]
